FAERS Safety Report 8219202-1 (Version None)
Quarter: 2012Q1

REPORT INFORMATION
  Report Type: 
  Country: None (occurrence: None)
  Receive Date: 20120319
  Receipt Date: 20120308
  Transmission Date: 20120608
  Serious: Yes (Other)
  Sender: FDA-Public Use
  Company Number: ES-JNJFOC-20090201474

PATIENT
  Sex: Female

DRUGS (4)
  1. CALCIUM AND VITAMIN D [Concomitant]
  2. REMICADE [Suspect]
     Route: 042
     Dates: start: 20020919, end: 20060715
  3. ACFOL [Concomitant]
  4. REMICADE [Suspect]
     Indication: RHEUMATOID ARTHRITIS
     Route: 042

REACTIONS (1)
  - BASAL CELL CARCINOMA [None]
